FAERS Safety Report 21499249 (Version 1)
Quarter: 2022Q4

REPORT INFORMATION
  Report Type: Spontaneous
  Country: US (occurrence: None)
  Receive Date: 20221023
  Receipt Date: 20221023
  Transmission Date: 20230113
  Serious: Yes (unspecified)
  Sender: FDA-Public Use
  Company Number: None

PATIENT
  Age: 35 Year
  Sex: Male

DRUGS (2)
  1. FENOFIBRATE [Suspect]
     Active Substance: FENOFIBRATE
     Indication: Drug therapy
     Dosage: OTHER QUANTITY : 1 TABLET(S);?FREQUENCY : AT BEDTIME;?
     Route: 048
     Dates: start: 20220707, end: 20220813
  2. TENOFOVIR [Suspect]
     Active Substance: TENOFOVIR

REACTIONS (2)
  - Product dispensing error [None]
  - Wrong product administered [None]

NARRATIVE: CASE EVENT DATE: 20220813
